FAERS Safety Report 9803580 (Version 1)
Quarter: 2014Q1

REPORT INFORMATION
  Report Type: Report from Study
  Country: KR (occurrence: KR)
  Receive Date: 20140108
  Receipt Date: 20140108
  Transmission Date: 20141002
  Serious: Yes (Hospitalization)
  Sender: FDA-Public Use
  Company Number: KR-SA-2014SA001092

PATIENT
  Age: 67 Year
  Sex: Female
  Weight: 67 kg

DRUGS (3)
  1. LANTUS [Suspect]
     Indication: DIABETES MELLITUS
     Dosage: DOSE:26 UNIT(S)
     Route: 058
     Dates: start: 20131102, end: 20131122
  2. APIDRA [Suspect]
     Indication: DIABETES MELLITUS
     Dosage: DOSE:6 UNIT(S)
     Route: 058
     Dates: start: 20131102, end: 20131122
  3. NOVOMIX [Suspect]
     Indication: DIABETES MELLITUS
     Dosage: DOSE: 26-22 UNIT
     Route: 058
     Dates: start: 20131123

REACTIONS (2)
  - Hepatic cancer [Unknown]
  - Blood glucose abnormal [Recovered/Resolved]
